FAERS Safety Report 7369789-6 (Version None)
Quarter: 2011Q1

REPORT INFORMATION
  Report Type: 
  Country: None (occurrence: None)
  Receive Date: 20110323
  Receipt Date: 20110318
  Transmission Date: 20110831
  Serious: Yes (Other)
  Sender: FDA-Public Use
  Company Number: BR-PFIZER INC-2011034524

PATIENT
  Age: 50 Year
  Sex: Female
  Weight: 62 kg

DRUGS (4)
  1. CITALOPRAM [Concomitant]
     Indication: DEPRESSION
     Dosage: 25 MG, 1X/DAY
     Dates: start: 20020101
  2. PANTOGAR [Concomitant]
     Indication: ALOPECIA
     Dosage: UNK
     Dates: start: 20090101
  3. CITALOPRAM [Concomitant]
     Indication: ANXIETY
  4. CHAMPIX [Suspect]
     Indication: TOBACCO USER
     Dosage: 0.5 MG, 1X/DAY
     Route: 048
     Dates: start: 20110214

REACTIONS (3)
  - NERVOUSNESS [None]
  - DEPRESSION [None]
  - EMOTIONAL DISORDER [None]
